FAERS Safety Report 5197704-2 (Version None)
Quarter: 2007Q1

REPORT INFORMATION
  Report Type: 
  Country: None (occurrence: None)
  Receive Date: 20070103
  Receipt Date: 20061221
  Transmission Date: 20070707
  Serious: Yes (Hospitalization)
  Sender: FDA-Public Use
  Company Number: FR-JNJFOC-20070100011

PATIENT
  Age: 85 Year
  Sex: Male
  Weight: 61.3 kg

DRUGS (5)
  1. TRAMADOL HCL [Suspect]
     Indication: DRUG USE FOR UNKNOWN INDICATION
     Route: 048
  2. EUCALCIC [Concomitant]
     Indication: DIALYSIS
     Route: 048
  3. RENAGEL [Concomitant]
     Indication: DIALYSIS
     Route: 048
  4. CORDARONE [Concomitant]
     Route: 048
  5. PREVISCAN [Concomitant]
     Route: 048

REACTIONS (4)
  - ANOREXIA [None]
  - CONDITION AGGRAVATED [None]
  - CONFUSIONAL STATE [None]
  - MOTOR DYSFUNCTION [None]
